FAERS Safety Report 7226435-X (Version None)
Quarter: 2010Q4

REPORT INFORMATION
  Report Type: 
  Country: None (occurrence: None)
  Receive Date: 20101126
  Receipt Date: 20100909
  Transmission Date: 20110411
  Serious: No
  Sender: FDA-Public Use
  Company Number: 314555

PATIENT
  Age: 72 Year
  Sex: Male

DRUGS (7)
  1. VICTOZA [Suspect]
     Indication: TYPE 2 DIABETES MELLITUS
     Dosage: 1.8 MG, QD, SUBCUTANEOUS
     Route: 058
  2. LANTUS [Concomitant]
  3. HUMALOG /00030501/ (INSULIN) [Concomitant]
  4. PLAVIX [Concomitant]
  5. DIOVAN [Concomitant]
  6. CRESTOR [Concomitant]
  7. TOPROL-XL [Concomitant]

REACTIONS (4)
  - ABDOMINAL PAIN [None]
  - NAUSEA [None]
  - VOMITING [None]
  - WEIGHT DECREASED [None]
